FAERS Safety Report 10210669 (Version 1)
Quarter: 2014Q2

REPORT INFORMATION
  Report Type: Spontaneous
  Country: GB (occurrence: GB)
  Receive Date: 20140602
  Receipt Date: 20140602
  Transmission Date: 20141212
  Serious: Yes (Other)
  Sender: FDA-Public Use
  Company Number: PHHY2014GB065177

PATIENT
  Age: 49 Year
  Sex: Female
  Weight: 78.1 kg

DRUGS (2)
  1. OMEPRAZOLE [Suspect]
     Indication: GASTRITIS
     Dosage: 20 MG, UNK
     Route: 048
     Dates: start: 20140420, end: 20140508
  2. THYROXINE [Concomitant]

REACTIONS (1)
  - Neck pain [Not Recovered/Not Resolved]
